FAERS Safety Report 6010402-8 (Version None)
Quarter: 2008Q4

REPORT INFORMATION
  Report Type: 
  Country: None (occurrence: None)
  Receive Date: 20081218
  Receipt Date: 20071213
  Transmission Date: 20090506
  Serious: No
  Sender: FDA-Public Use
  Company Number: US-AMGEN-KDL256772

PATIENT
  Sex: Female

DRUGS (1)
  1. ENBREL [Suspect]
     Indication: PSORIASIS
     Route: 058
     Dates: start: 20070927, end: 20071101

REACTIONS (5)
  - EAR PAIN [None]
  - EYE PAIN [None]
  - HEADACHE [None]
  - HYPOAESTHESIA [None]
  - PAIN IN EXTREMITY [None]
